FAERS Safety Report 10015367 (Version 1)
Quarter: 2014Q1

REPORT INFORMATION
  Report Type: Spontaneous
  Country: US (occurrence: US)
  Receive Date: 20140317
  Receipt Date: 20140317
  Transmission Date: 20141002
  Serious: No
  Sender: FDA-Public Use
  Company Number: US-PFIZER INC-2014075187

PATIENT
  Age: 46 Year
  Sex: Male
  Weight: 93 kg

DRUGS (8)
  1. CHANTIX [Suspect]
     Indication: SMOKING CESSATION THERAPY
     Dosage: UNK
     Route: 048
  2. CHANTIX [Suspect]
     Dosage: 0.5 MG, 1X/DAY
     Route: 048
     Dates: start: 20140305, end: 201403
  3. CHANTIX [Suspect]
     Dosage: UNK
     Route: 048
     Dates: start: 201403
  4. INSULIN [Concomitant]
     Indication: TYPE 1 DIABETES MELLITUS
     Dosage: UNK
  5. CLOPIDOGREL [Concomitant]
     Dosage: 75 MG, 1X/DAY
  6. NEXIUM [Concomitant]
     Dosage: 40 MG, 1X/DAY
  7. CARVEDILOL [Concomitant]
     Dosage: 6.25 MG, 2X/DAY
  8. ATORVASTATIN [Concomitant]
     Dosage: 80 MG, UNK

REACTIONS (1)
  - Abnormal dreams [Unknown]
